FAERS Safety Report 18561747 (Version 1)
Quarter: 2020Q4

REPORT INFORMATION
  Report Type: Spontaneous
  Country: US (occurrence: US)
  Receive Date: 20201130
  Receipt Date: 20201130
  Transmission Date: 20210114
  Serious: No
  Sender: FDA-Public Use
  Company Number: US-ROCHE-2650148

PATIENT
  Sex: Female

DRUGS (6)
  1. PERJETA [Suspect]
     Active Substance: PERTUZUMAB
     Indication: BREAST CANCER METASTATIC
     Dosage: ONGOING : UNKNOWN
     Route: 065
     Dates: start: 201304
  2. TYKERB [Concomitant]
     Active Substance: LAPATINIB DITOSYLATE
  3. HERCEPTIN [Suspect]
     Active Substance: TRASTUZUMAB
     Indication: BREAST CANCER METASTATIC
     Route: 065
     Dates: start: 201304
  4. XELODA [Suspect]
     Active Substance: CAPECITABINE
     Indication: PRODUCT USED FOR UNKNOWN INDICATION
     Route: 065
  5. FEMARA [Concomitant]
     Active Substance: LETROZOLE
  6. ZOLADEX [Concomitant]
     Active Substance: GOSERELIN ACETATE

REACTIONS (9)
  - Fluid retention [Unknown]
  - Alopecia [Not Recovered/Not Resolved]
  - Gait disturbance [Unknown]
  - Hair growth abnormal [Not Recovered/Not Resolved]
  - Loss of libido [Not Recovered/Not Resolved]
  - Libido decreased [Not Recovered/Not Resolved]
  - Menopausal symptoms [Not Recovered/Not Resolved]
  - Dyspareunia [Not Recovered/Not Resolved]
  - Depression [Unknown]
